FAERS Safety Report 7099906-7 (Version None)
Quarter: 2010Q4

REPORT INFORMATION
  Report Type: 
  Country: None (occurrence: None)
  Receive Date: 20101112
  Receipt Date: 20101110
  Transmission Date: 20110411
  Serious: Yes (Life-Threatening, Hospitalization, Other)
  Sender: FDA-Public Use
  Company Number: PHHY2010JP64951

PATIENT
  Age: 21 Year
  Sex: Female
  Weight: 70 kg

DRUGS (11)
  1. NEORAL [Suspect]
     Indication: BONE MARROW TRANSPLANT
     Dosage: UNK
     Route: 048
  2. NEORAL [Suspect]
     Indication: PROPHYLAXIS AGAINST GRAFT VERSUS HOST DISEASE
  3. FLUDARABINE PHOSPHATE [Concomitant]
     Indication: BONE MARROW TRANSPLANT
     Dosage: 125 MG/ M2
  4. MELPHALAN HYDROCHLORIDE [Concomitant]
     Indication: BONE MARROW TRANSPLANT
     Dosage: 140 MG/M2
  5. METHOTREXATE [Concomitant]
     Indication: PROPHYLAXIS AGAINST GRAFT VERSUS HOST DISEASE
  6. PREDNISOLONE [Concomitant]
     Indication: BONE MARROW TRANSPLANT
     Dosage: 48MG
     Route: 048
  7. PREDNISOLONE [Concomitant]
     Dosage: 30MG
     Route: 048
  8. PREDNISOLONE [Concomitant]
     Dosage: 10MG
     Route: 048
  9. PREDNISOLONE [Concomitant]
     Dosage: UNK
     Route: 048
  10. FENTANYL [Concomitant]
  11. ACYCLOVIR SODIUM [Concomitant]
     Indication: ANTIVIRAL PROPHYLAXIS

REACTIONS (12)
  - ABDOMINAL PAIN UPPER [None]
  - ACUTE GRAFT VERSUS HOST DISEASE IN SKIN [None]
  - BLISTER [None]
  - CONSTIPATION [None]
  - HEPATIC ENZYME INCREASED [None]
  - HERPES ZOSTER DISSEMINATED [None]
  - HISTIOCYTOSIS HAEMATOPHAGIC [None]
  - MECHANICAL VENTILATION [None]
  - PANCYTOPENIA [None]
  - RASH [None]
  - SERUM FERRITIN INCREASED [None]
  - VARICELLA VIRUS TEST POSITIVE [None]
